FAERS Safety Report 12305978 (Version 1)
Quarter: 2016Q2

REPORT INFORMATION
  Report Type: Spontaneous
  Country: FR (occurrence: FR)
  Receive Date: 20160426
  Receipt Date: 20160426
  Transmission Date: 20160815
  Serious: Yes (Hospitalization)
  Sender: FDA-Public Use
  Company Number: FR-JNJFOC-20160416526

PATIENT
  Age: 88 Year
  Sex: Female

DRUGS (14)
  1. RISPERDAL [Suspect]
     Active Substance: RISPERIDONE
     Indication: PRESENILE DEMENTIA
     Route: 048
     Dates: start: 20150824, end: 2015
  2. OGASTORO [Suspect]
     Active Substance: LANSOPRAZOLE
     Indication: GASTROOESOPHAGEAL REFLUX DISEASE
     Route: 048
     Dates: start: 20150413, end: 20160305
  3. LOSARTAN/HYDROCHLOROTHIAZIDE MYLAN [Concomitant]
     Route: 048
  4. RISPERDAL [Suspect]
     Active Substance: RISPERIDONE
     Indication: PRESENILE DEMENTIA
     Route: 048
     Dates: start: 20160302, end: 20160305
  5. NOVORAPID [Concomitant]
     Active Substance: INSULIN ASPART
     Route: 065
  6. EDUCTYL [Concomitant]
     Active Substance: POTASSIUM BITARTRATE\SODIUM BICARBONATE
     Route: 048
  7. RISPERDAL [Suspect]
     Active Substance: RISPERIDONE
     Indication: PRESENILE DEMENTIA
     Route: 048
     Dates: start: 20151007, end: 20160302
  8. RISPERDAL [Suspect]
     Active Substance: RISPERIDONE
     Indication: PRESENILE DEMENTIA
     Route: 048
     Dates: start: 20150918, end: 2015
  9. LANTUS [Concomitant]
     Active Substance: INSULIN GLARGINE
     Route: 065
  10. RISPERDAL [Suspect]
     Active Substance: RISPERIDONE
     Indication: PRESENILE DEMENTIA
     Route: 048
     Dates: start: 20150410, end: 2015
  11. DAFALGAN [Concomitant]
     Active Substance: ACETAMINOPHEN
     Route: 048
  12. MIANSERIN HYDROCHLORIDE [Suspect]
     Active Substance: MIANSERIN HYDROCHLORIDE
     Indication: DEPRESSION
     Route: 048
     Dates: start: 20150413, end: 20160305
  13. MACROGOL 4000 MYLAN [Concomitant]
     Route: 048
  14. FLUINDIONE [Concomitant]
     Active Substance: FLUINDIONE
     Route: 048

REACTIONS (1)
  - Pancytopenia [Recovered/Resolved]

NARRATIVE: CASE EVENT DATE: 20160301
